FAERS Safety Report 7419998-2 (Version None)
Quarter: 2011Q2

REPORT INFORMATION
  Report Type: 
  Country: None (occurrence: None)
  Receive Date: 20110418
  Receipt Date: 20110408
  Transmission Date: 20111010
  Serious: No
  Sender: FDA-Public Use
  Company Number: US-BIOGENIDEC-2011BI000939

PATIENT
  Sex: Female

DRUGS (7)
  1. TYSABRI [Suspect]
     Indication: MULTIPLE SCLEROSIS
     Route: 042
     Dates: start: 20110103
  2. LIDODERM [Concomitant]
     Indication: BACK DISORDER
  3. CLONIDINE [Concomitant]
     Indication: INSOMNIA
  4. LIDODERM [Concomitant]
     Indication: ARTHRALGIA
  5. FENTANYL-100 [Concomitant]
     Indication: BACK DISORDER
  6. FENTANYL-100 [Concomitant]
     Indication: ARTHRALGIA
  7. DIAZEPAM [Concomitant]
     Indication: MUSCLE SPASMS

REACTIONS (19)
  - JOINT SWELLING [None]
  - HEAD TITUBATION [None]
  - PRURITUS [None]
  - ASTHENIA [None]
  - INFUSION SITE HAEMATOMA [None]
  - BURNING SENSATION [None]
  - PAIN [None]
  - OEDEMA PERIPHERAL [None]
  - FATIGUE [None]
  - CONFUSIONAL STATE [None]
  - BACK DISORDER [None]
  - MUSCULOSKELETAL DISORDER [None]
  - INFUSION SITE HAEMORRHAGE [None]
  - INSOMNIA [None]
  - MUSCLE SPASMS [None]
  - ARTHRALGIA [None]
  - NAUSEA [None]
  - MOBILITY DECREASED [None]
  - HEADACHE [None]
